FAERS Safety Report 8454678-6 (Version None)
Quarter: 2012Q2

REPORT INFORMATION
  Report Type: 
  Country: None (occurrence: None)
  Receive Date: 20120615
  Receipt Date: 20120615
  Transmission Date: 20120825
  Serious: No
  Sender: FDA-Public Use
  Company Number: None

PATIENT
  Age: 51 Year
  Sex: Male
  Weight: 56.6996 kg

DRUGS (1)
  1. ACETAMINOPHEN [Suspect]
     Indication: TOOTH DISORDER

REACTIONS (1)
  - ILL-DEFINED DISORDER [None]
